FAERS Safety Report 7265209-0 (Version None)
Quarter: 2011Q1

REPORT INFORMATION
  Report Type: 
  Country: None (occurrence: None)
  Receive Date: 20110131
  Receipt Date: 20110127
  Transmission Date: 20110831
  Serious: Yes (Other)
  Sender: FDA-Public Use
  Company Number: BR-ABBOTT-10P-020-0692853-00

PATIENT
  Sex: Male
  Weight: 60 kg

DRUGS (3)
  1. HUMIRA [Suspect]
     Route: 058
  2. HUMIRA [Suspect]
     Dosage: LOADING DOSE 80MG
     Route: 058
  3. HUMIRA [Suspect]
     Indication: CROHN'S DISEASE
     Dosage: LOADING DOSE:   160MG/80 MG  LOADING DOSE 160MG
     Route: 058
     Dates: start: 20090821, end: 20090821

REACTIONS (3)
  - PROCTITIS [None]
  - ANAL FISTULA [None]
  - HAEMORRHOIDS [None]
